FAERS Safety Report 5803438-0 (Version None)
Quarter: 2008Q3

REPORT INFORMATION
  Report Type: 
  Country: None (occurrence: None)
  Receive Date: 20080708
  Receipt Date: 20080626
  Transmission Date: 20090109
  Serious: Yes (Hospitalization, Other)
  Sender: FDA-Public Use
  Company Number: PHHO2008US06923

PATIENT
  Sex: Male
  Weight: 97.2 kg

DRUGS (7)
  1. STI571/CGP57148B T35717+CAPS [Suspect]
     Indication: OLIGODENDROGLIOMA
     Dosage: 300 MG, BID
     Route: 048
     Dates: start: 20080502, end: 20080508
  2. STI571/CGP57148B T35717+CAPS [Suspect]
     Dosage: UNK
     Dates: start: 20080509, end: 20080518
  3. STI571/CGP57148B T35717+CAPS [Suspect]
     Dosage: 400 MG QD
     Dates: start: 20080519, end: 20080530
  4. ANTIDEPRESSANTS [Concomitant]
  5. ATIVAN [Suspect]
  6. DECADRON [Suspect]
  7. KEPPRA [Suspect]

REACTIONS (12)
  - BRAIN OEDEMA [None]
  - DEHYDRATION [None]
  - DEPRESSION [None]
  - DIZZINESS [None]
  - FATIGUE [None]
  - HEADACHE [None]
  - HICCUPS [None]
  - HYPOTENSION [None]
  - NAUSEA [None]
  - PERIPHERAL MOTOR NEUROPATHY [None]
  - SOMNOLENCE [None]
  - VOMITING [None]
